FAERS Safety Report 8486233-6 (Version None)
Quarter: 2012Q3

REPORT INFORMATION
  Report Type: 
  Country: None (occurrence: None)
  Receive Date: 20120703
  Receipt Date: 20120627
  Transmission Date: 20120928
  Serious: Yes (Life-Threatening, Hospitalization, Other)
  Sender: FDA-Public Use
  Company Number: BE-ELI_LILLY_AND_COMPANY-BE201206000294

PATIENT
  Sex: Male
  Weight: 46 kg

DRUGS (4)
  1. ALIMTA [Suspect]
     Dosage: 761 MG, UNKNOWN
     Route: 042
     Dates: start: 20120516
  2. CISPLATIN [Concomitant]
     Indication: LUNG NEOPLASM MALIGNANT
     Dosage: UNK
     Dates: start: 20111108
  3. ALIMTA [Suspect]
     Indication: LUNG ADENOCARCINOMA
     Dosage: 500 MG, EVERY 3 WEEKS
     Dates: start: 20111108
  4. ALIMTA [Suspect]
     Dosage: 500 MG, UNK

REACTIONS (3)
  - PNEUMONIA [None]
  - FEBRILE NEUTROPENIA [None]
  - CHRONIC OBSTRUCTIVE PULMONARY DISEASE [None]
